FAERS Safety Report 6585467-5 (Version None)
Quarter: 2010Q1

REPORT INFORMATION
  Report Type: 
  Country: None (occurrence: None)
  Receive Date: 20100217
  Receipt Date: 20100205
  Transmission Date: 20100710
  Serious: Yes (Hospitalization)
  Sender: FDA-Public Use
  Company Number: FR-GENENTECH-297921

PATIENT
  Sex: Male

DRUGS (14)
  1. MABTHERA [Suspect]
     Indication: CHRONIC LYMPHOCYTIC LEUKAEMIA
     Dosage: DOSE: 375 MG/M2 AT DAY 3 FOR CYCLE 1
     Route: 042
     Dates: start: 20071006
  2. MABTHERA [Suspect]
     Dosage: DOSE: 500 MG/M2 AT DAY 1 FOR CYCLE 2 AND 4
     Route: 042
     Dates: start: 20071104
  3. MABTHERA [Suspect]
     Dosage: 500 MG/M2
     Route: 042
     Dates: start: 20080312, end: 20080618
  4. FLUDARABINE PHOSPHATE [Suspect]
     Indication: CHRONIC LYMPHOCYTIC LEUKAEMIA
     Dosage: DOSE: 30 MG/M2; DAY 1 TO DAY 3; ROUTE: INTRAVENOUS
     Route: 050
     Dates: start: 20071004
  5. FLUDARABINE PHOSPHATE [Suspect]
     Dosage: DAY 1 TO DAY 2; ROUTE: ORAL
     Route: 050
     Dates: end: 20080410
  6. CYCLOPHOSPHAMIDE [Suspect]
     Indication: CHRONIC LYMPHOCYTIC LEUKAEMIA
     Dosage: DOSE: 250 MG/M2 FROM DAY 1 TO DAY 3; ROUTE: INTRAVENOUS
     Route: 050
     Dates: start: 20071004
  7. CYCLOPHOSPHAMIDE [Suspect]
     Dosage: FROM DAY 1 TO DAY 2; ROUTE: ORAL
     Route: 050
     Dates: end: 20080410
  8. UROMITEXAN [Concomitant]
     Dosage: UNK
  9. ZOPHREN [Concomitant]
     Dosage: UNK
  10. POLARAMINE [Concomitant]
     Dosage: UNK
  11. SOLU-MEDROL [Concomitant]
     Dosage: UNK
  12. HEMI-DAONIL [Concomitant]
     Dosage: 3 DOSES DAILY
  13. AVANDAMET [Concomitant]
     Dosage: 2 DOSES DAILY
  14. ZESTORETIC [Concomitant]
     Dosage: ONE DOSE DAILY

REACTIONS (1)
  - PROGRESSIVE MULTIFOCAL LEUKOENCEPHALOPATHY [None]
